FAERS Safety Report 12729781 (Version 1)
Quarter: 2016Q3

REPORT INFORMATION
  Report Type: Spontaneous
  Country: US (occurrence: US)
  Receive Date: 20160909
  Receipt Date: 20160909
  Transmission Date: 20161109
  Serious: Yes (Other)
  Sender: FDA-Public Use
  Company Number: US-MEDA-2016090012

PATIENT
  Sex: Male

DRUGS (1)
  1. MUSE [Suspect]
     Active Substance: ALPROSTADIL
     Indication: ERECTILE DYSFUNCTION
     Route: 066

REACTIONS (2)
  - Priapism [Not Recovered/Not Resolved]
  - Penile pain [Not Recovered/Not Resolved]

NARRATIVE: CASE EVENT DATE: 201609
